FAERS Safety Report 6936236-5 (Version None)
Quarter: 2010Q3

REPORT INFORMATION
  Report Type: 
  Country: None (occurrence: None)
  Receive Date: 20100823
  Receipt Date: 20100811
  Transmission Date: 20110219
  Serious: Yes (Other)
  Sender: FDA-Public Use
  Company Number: SE-PFIZER INC-2010101864

PATIENT
  Age: 58 Year
  Sex: Female

DRUGS (1)
  1. DALACIN [Suspect]
     Dosage: 300 MG, 2X/DAY
     Dates: start: 20100808, end: 20100810

REACTIONS (2)
  - SWOLLEN TONGUE [None]
  - TONGUE BLISTERING [None]
